FAERS Safety Report 4887432-2 (Version None)
Quarter: 2006Q1

REPORT INFORMATION
  Report Type: 
  Country: None (occurrence: None)
  Receive Date: 20060123
  Receipt Date: 20060111
  Transmission Date: 20060701
  Serious: Yes (Other)
  Sender: FDA-Public Use
  Company Number: US-AMGEN-US164786

PATIENT
  Sex: Male
  Weight: 78.5 kg

DRUGS (4)
  1. PROCRIT [Suspect]
     Indication: ANAEMIA OF MALIGNANT DISEASE
     Route: 042
     Dates: start: 20050916, end: 20051207
  2. FAMVIR [Concomitant]
  3. BACTRIM [Concomitant]
  4. PREDNISONE [Concomitant]

REACTIONS (3)
  - BONE MARROW FAILURE [None]
  - DRUG INEFFECTIVE [None]
  - THERAPY NON-RESPONDER [None]
